FAERS Safety Report 21508154 (Version 3)
Quarter: 2024Q1

REPORT INFORMATION
  Report Type: Spontaneous
  Country: US (occurrence: US)
  Receive Date: 20221026
  Receipt Date: 20240208
  Transmission Date: 20240410
  Serious: No
  Sender: FDA-Public Use
  Company Number: US-ELI_LILLY_AND_COMPANY-US202210012212

PATIENT
  Age: 67 Year
  Sex: Male

DRUGS (10)
  1. HUMULIN 70/30 [Suspect]
     Active Substance: INSULIN HUMAN
     Indication: Product used for unknown indication
     Dosage: UNK UNK, UNKNOWN
     Route: 065
  2. HUMULIN 70/30 [Suspect]
     Active Substance: INSULIN HUMAN
     Indication: Product used for unknown indication
     Dosage: UNK UNK, UNKNOWN
     Route: 065
  3. HUMULIN 70/30 [Suspect]
     Active Substance: INSULIN HUMAN
     Dosage: UNK UNK, UNKNOWN
     Route: 065
  4. HUMULIN 70/30 [Suspect]
     Active Substance: INSULIN HUMAN
     Dosage: UNK UNK, UNKNOWN
     Route: 065
  5. HUMULIN 70/30 [Suspect]
     Active Substance: INSULIN HUMAN
     Dosage: 45 U, UNKNOWN (35 UNITS AM AND 10 UNITS PM)
     Route: 058
  6. HUMULIN 70/30 [Suspect]
     Active Substance: INSULIN HUMAN
     Dosage: 45 U, UNKNOWN (35 UNITS AM AND 10 UNITS PM)
     Route: 058
  7. HUMULIN 70/30 [Suspect]
     Active Substance: INSULIN HUMAN
     Dosage: 45 U, UNKNOWN (35 UNITS AM AND 10 UNITS PM)
     Route: 058
  8. HUMULIN 70/30 [Suspect]
     Active Substance: INSULIN HUMAN
     Dosage: 45 U, UNKNOWN (35 UNITS AM AND 10 UNITS PM)
     Route: 058
  9. HUMULIN 70/30 [Suspect]
     Active Substance: INSULIN HUMAN
     Dosage: 45 U, UNKNOWN (35 UNITS AM AND 10 UNITS PM)
     Route: 058
  10. HUMULIN 70/30 [Suspect]
     Active Substance: INSULIN HUMAN
     Dosage: 45 U, UNKNOWN (35 UNITS AM AND 10 UNITS PM)
     Route: 058

REACTIONS (3)
  - Blood glucose increased [Not Recovered/Not Resolved]
  - Product storage error [Unknown]
  - Hypoacusis [Unknown]
